FAERS Safety Report 20120447 (Version 1)
Quarter: 2021Q4

REPORT INFORMATION
  Report Type: Spontaneous
  Country: US (occurrence: US)
  Receive Date: 20211126
  Receipt Date: 20211126
  Transmission Date: 20220303
  Serious: Yes (Other)
  Sender: FDA-Public Use
  Company Number: US-ELI_LILLY_AND_COMPANY-US202111006671

PATIENT
  Age: 45 Year
  Sex: Male

DRUGS (1)
  1. RETEVMO [Suspect]
     Active Substance: SELPERCATINIB
     Indication: Lung neoplasm malignant
     Dosage: 40 MG, UNKNOWN
     Route: 065

REACTIONS (3)
  - Arterial stenosis [Unknown]
  - Coronary artery disease [Unknown]
  - Dyslipidaemia [Unknown]
